FAERS Safety Report 9305370 (Version 1)
Quarter: 2013Q2

REPORT INFORMATION
  Report Type: Report from Study
  Country: DE (occurrence: DE)
  Receive Date: 20130523
  Receipt Date: 20130523
  Transmission Date: 20140414
  Serious: Yes (Death, Hospitalization)
  Sender: FDA-Public Use
  Company Number: DE-BRISTOL-MYERS SQUIBB COMPANY-18849596

PATIENT
  Age: 67 Year
  Sex: Male
  Weight: 59 kg

DRUGS (4)
  1. CETUXIMAB [Suspect]
     Indication: HEAD AND NECK CANCER
     Dosage: LAST ADMIN:22APR2013
     Route: 042
     Dates: start: 20130325
  2. CISPLATIN FOR INJ [Suspect]
     Indication: HEAD AND NECK CANCER
     Dosage: LAST ADMIN:22APR2013
     Route: 042
     Dates: start: 20130325
  3. 5-FLUOROURACIL [Suspect]
     Indication: HEAD AND NECK CANCER
     Dosage: LAST ADMIN:22APR2013
     Route: 042
     Dates: start: 20130325
  4. DOCETAXEL [Suspect]
     Indication: HEAD AND NECK CANCER
     Dosage: LAST ADMIN:22APR2013
     Route: 042
     Dates: start: 20130325

REACTIONS (4)
  - General physical health deterioration [Fatal]
  - Tracheitis [Fatal]
  - Arterial haemorrhage [Fatal]
  - Neutropenia [Not Recovered/Not Resolved]
